FAERS Safety Report 4495452-5 (Version None)
Quarter: 2004Q4

REPORT INFORMATION
  Report Type: 
  Country: None (occurrence: None)
  Receive Date: 20041108
  Receipt Date: 20041025
  Transmission Date: 20050328
  Serious: Yes (Other)
  Sender: FDA-Public Use
  Company Number: 200414112FR

PATIENT
  Age: 78 Year
  Sex: Male

DRUGS (4)
  1. RILUTEK [Suspect]
     Indication: AMYOTROPHIC LATERAL SCLEROSIS
     Route: 048
     Dates: start: 20040601
  2. KARDEGIC [Concomitant]
  3. FLECAINE [Concomitant]
  4. PERMIXON [Concomitant]

REACTIONS (10)
  - AMYOTROPHY [None]
  - ARTHRALGIA [None]
  - ASTHENIA [None]
  - DRUG RESISTANCE [None]
  - GENERAL PHYSICAL HEALTH DETERIORATION [None]
  - LYMPHOPENIA [None]
  - MYALGIA [None]
  - Q FEVER [None]
  - TRANSAMINASES INCREASED [None]
  - WEIGHT DECREASED [None]
